FAERS Safety Report 13748031 (Version 3)
Quarter: 2017Q3

REPORT INFORMATION
  Report Type: Spontaneous
  Country: IN (occurrence: IN)
  Receive Date: 20170713
  Receipt Date: 20170811
  Transmission Date: 20171127
  Serious: Yes (Death)
  Sender: FDA-Public Use
  Company Number: IN-GE HEALTHCARE LIFE SCIENCES-2017CSU002005

PATIENT

DRUGS (1)
  1. OMNIPAQUE [Suspect]
     Active Substance: IOHEXOL
     Indication: ABDOMINAL PAIN UPPER
     Dosage: 80 ML, SINGLE
     Route: 042
     Dates: start: 20170630, end: 20170630

REACTIONS (3)
  - Chills [Fatal]
  - Pleural effusion [Fatal]
  - Vomiting [Fatal]

NARRATIVE: CASE EVENT DATE: 20170630
